FAERS Safety Report 8482997-6 (Version None)
Quarter: 2012Q3

REPORT INFORMATION
  Report Type: 
  Country: None (occurrence: None)
  Receive Date: 20120702
  Receipt Date: 20120626
  Transmission Date: 20120928
  Serious: Yes (Death)
  Sender: FDA-Public Use
  Company Number: TW-JNJFOC-20120613502

PATIENT
  Age: 34 Year
  Sex: Female

DRUGS (3)
  1. CHLORPROMAZINE HCL [Suspect]
     Indication: BINGE DRINKING
     Dosage: 100 MG/DAY
     Route: 065
  2. TRIHEXYPHENIDYL HCL [Suspect]
     Indication: BINGE DRINKING
     Dosage: 4 MG/DAY
     Route: 065
  3. HALOPERIDOL [Suspect]
     Indication: BINGE DRINKING
     Dosage: 20 MG/DAY
     Route: 065

REACTIONS (5)
  - NEUROLEPTIC MALIGNANT SYNDROME [None]
  - COMA [None]
  - HYPERGLYCAEMIC HYPEROSMOLAR NONKETOTIC SYNDROME [None]
  - RENAL IMPAIRMENT [None]
  - HYPOTENSION [None]
